FAERS Safety Report 5164571-2 (Version None)
Quarter: 2006Q4

REPORT INFORMATION
  Report Type: 
  Country: None (occurrence: None)
  Receive Date: 20061205
  Receipt Date: 20061002
  Transmission Date: 20070319
  Serious: Yes (Other)
  Sender: FDA-Public Use
  Company Number: US-ROCHE-465801

PATIENT
  Age: 26 Year
  Sex: Female

DRUGS (1)
  1. ACCUTANE [Suspect]
     Route: 048
     Dates: end: 20060913

REACTIONS (1)
  - BLEPHARITIS [None]
